FAERS Safety Report 5636466-9 (Version None)
Quarter: 2008Q1

REPORT INFORMATION
  Report Type: 
  Country: None (occurrence: None)
  Receive Date: 20080220
  Receipt Date: 20080207
  Transmission Date: 20080703
  Serious: Yes (Congenital Anomaly)
  Sender: FDA-Public Use
  Company Number: 8029863

PATIENT

DRUGS (4)
  1. KEPPRA [Suspect]
     Indication: PARTIAL SEIZURES
     Dosage: 2000 MG/D TRP
     Route: 064
  2. KEPPRA [Suspect]
     Indication: PARTIAL SEIZURES
     Dosage: 1000 MG/ D TRP
     Route: 064
  3. URBANYL [Concomitant]
  4. SPECIAFOLDINE [Concomitant]

REACTIONS (6)
  - CONGENITAL NOSE MALFORMATION [None]
  - CONGENITAL RENAL CYST [None]
  - DRUG EXPOSURE DURING PREGNANCY [None]
  - FOETAL MALFORMATION [None]
  - PREGNANCY WITH CONTRACEPTIVE DEVICE [None]
  - TALIPES [None]
